FAERS Safety Report 7067329-2 (Version None)
Quarter: 2010Q4

REPORT INFORMATION
  Report Type: 
  Country: None (occurrence: None)
  Receive Date: 20101022
  Receipt Date: 20101022
  Transmission Date: 20110411
  Serious: Yes (Other)
  Sender: FDA-Public Use
  Company Number: None

PATIENT
  Sex: Female
  Weight: 62.5964 kg

DRUGS (1)
  1. DOXYCYCLINE HYCLATE [Suspect]
     Indication: ARTHROPOD BITE
     Dosage: 100 MG 2 X DAILY PO
     Route: 048
     Dates: start: 20101009, end: 20101011

REACTIONS (2)
  - VERTIGO [None]
  - VOMITING [None]
